FAERS Safety Report 11044326 (Version 1)
Quarter: 2015Q2

REPORT INFORMATION
  Report Type: Spontaneous
  Country: US (occurrence: None)
  Receive Date: 20150416
  Receipt Date: 20150416
  Transmission Date: 20150821
  Serious: Yes (Other)
  Sender: FDA-Public Use
  Company Number: None

PATIENT

DRUGS (5)
  1. SUCCINYLCHOLINE [Concomitant]
     Active Substance: SUCCINYLCHOLINE
  2. PROPOFOL. [Concomitant]
     Active Substance: PROPOFOL
  3. FENTANYL. [Concomitant]
     Active Substance: FENTANYL
  4. MARCAINE [Suspect]
     Active Substance: BUPIVACAINE HYDROCHLORIDE
     Indication: SPINAL ANAESTHESIA
     Dates: start: 20150410
  5. SEVOFLURANE. [Concomitant]
     Active Substance: SEVOFLURANE

REACTIONS (1)
  - Drug ineffective [None]

NARRATIVE: CASE EVENT DATE: 20150410
